FAERS Safety Report 15462211 (Version 1)
Quarter: 2018Q4

REPORT INFORMATION
  Report Type: Spontaneous
  Country: US (occurrence: US)
  Receive Date: 20181003
  Receipt Date: 20181003
  Transmission Date: 20190204
  Serious: Yes (Other)
  Sender: FDA-Public Use
  Company Number: US-ANIPHARMA-2018-US-005948

PATIENT
  Age: 21 Year
  Sex: Female

DRUGS (6)
  1. OMEPRAZOLE. [Concomitant]
     Active Substance: OMEPRAZOLE
     Dosage: 20 MG ONCE DAILY
  2. LORAZEPAM. [Concomitant]
     Active Substance: LORAZEPAM
     Dosage: AS NEEDED
  3. FAMOTIDINE. [Concomitant]
     Active Substance: FAMOTIDINE
     Dosage: 20 MG ONCE DAILY
  4. ERYTHROMYCIN ETHYLSUCCINATE FOR ORAL SUSPENSION USP [Suspect]
     Active Substance: ERYTHROMYCIN ETHYLSUCCINATE
     Indication: GASTROINTESTINAL HYPOMOTILITY
     Dosage: 150MG TWICE DAILY
     Dates: start: 20180406
  5. LEVOCARNITINE. [Concomitant]
     Active Substance: LEVOCARNITINE
     Dosage: 990MG TWICE DAILY
  6. TOPAMAX [Concomitant]
     Active Substance: TOPIRAMATE
     Dosage: 25 MG  THREE TIMES DAILY

REACTIONS (2)
  - Seizure [Unknown]
  - Condition aggravated [Unknown]

NARRATIVE: CASE EVENT DATE: 201804
